FAERS Safety Report 12508614 (Version 2)
Quarter: 2016Q3

REPORT INFORMATION
  Report Type: Spontaneous
  Country: BR (occurrence: BR)
  Receive Date: 20160629
  Receipt Date: 20160712
  Transmission Date: 20161109
  Serious: Yes (Other)
  Sender: FDA-Public Use
  Company Number: BR-ELI_LILLY_AND_COMPANY-BR201605001432

PATIENT
  Sex: Female
  Weight: 81 kg

DRUGS (14)
  1. HUMULIN N [Suspect]
     Active Substance: INSULIN HUMAN
     Dosage: 8 IU, QD
     Route: 058
  2. HUMULIN N [Suspect]
     Active Substance: INSULIN HUMAN
     Indication: TYPE 1 DIABETES MELLITUS
     Dosage: UNK UNK, EACH MORNING
     Route: 058
  3. HUMULIN R [Suspect]
     Active Substance: INSULIN HUMAN
     Dosage: 8 IU, EACH EVENING
     Route: 065
     Dates: start: 2012, end: 2014
  4. DILTIAZEM. [Concomitant]
     Active Substance: DILTIAZEM
     Indication: MITRAL VALVE DISEASE
     Dosage: 30 MG, BID
     Route: 065
  5. DILTIAZEM. [Concomitant]
     Active Substance: DILTIAZEM
     Indication: PALPITATIONS
  6. SINVASTATINA [Concomitant]
     Active Substance: SIMVASTATIN
     Dosage: 40 MG, UNK
  7. ENALAPRIL [Concomitant]
     Active Substance: ENALAPRIL
     Indication: DIURETIC THERAPY
     Dosage: 5 MG, BID
     Route: 065
  8. HUMULIN R [Suspect]
     Active Substance: INSULIN HUMAN
     Indication: TYPE 1 DIABETES MELLITUS
     Dosage: 8 IU, EACH MORNING
     Route: 065
     Dates: start: 2012, end: 2014
  9. AAS [Concomitant]
     Active Substance: ASPIRIN
  10. HUMULIN N [Suspect]
     Active Substance: INSULIN HUMAN
     Dosage: 8 IU, EACH EVENING
     Route: 058
  11. MONOCORDIL [Concomitant]
     Active Substance: ISOSORBIDE MONONITRATE
     Indication: VASODILATATION
     Dosage: 20 MG, TID
     Route: 065
  12. DIAZEPAM. [Concomitant]
     Active Substance: DIAZEPAM
  13. OMEPRAZOL                          /00661201/ [Concomitant]
     Active Substance: OMEPRAZOLE
  14. ATENOLOL. [Concomitant]
     Active Substance: ATENOLOL
     Indication: BLOOD PRESSURE ABNORMAL
     Dosage: 100 MG, QD
     Route: 065

REACTIONS (15)
  - Myocardial infarction [Unknown]
  - Injection site bruising [Unknown]
  - Injection site swelling [Unknown]
  - Underdose [Unknown]
  - Dyspnoea [Not Recovered/Not Resolved]
  - Vision blurred [Not Recovered/Not Resolved]
  - Hyperglycaemia [Unknown]
  - Arteriosclerosis [Unknown]
  - Complication associated with device [Unknown]
  - Injection site vesicles [Unknown]
  - Chest pain [Not Recovered/Not Resolved]
  - Dysgeusia [Unknown]
  - Hypoglycaemia [Unknown]
  - Drug effect delayed [Unknown]
  - Injection site pain [Unknown]

NARRATIVE: CASE EVENT DATE: 2006
